FAERS Safety Report 10065122 (Version 1)
Quarter: 2014Q1

REPORT INFORMATION
  Report Type: Spontaneous
  Country: US (occurrence: None)
  Receive Date: 20140328
  Receipt Date: 20140328
  Transmission Date: 20141002
  Serious: No
  Sender: FDA-Public Use
  Company Number: CABO-13003768

PATIENT
  Age: 58 Year
  Sex: Male
  Weight: 85 kg

DRUGS (3)
  1. COMETRIQ (CARBOZANTINIB) CAPSULE [Suspect]
     Indication: THYROID CANCER
     Route: 048
     Dates: start: 20131120
  2. MULTIVITAMIN (VITAMINS NOS) [Concomitant]
  3. BENTYL (DICYCLOVERINE HYDROCHLORIDE) [Concomitant]

REACTIONS (4)
  - Pain [None]
  - Back pain [None]
  - Oral mucosal blistering [None]
  - Stomatitis [None]
